FAERS Safety Report 5901216-5 (Version None)
Quarter: 2008Q3

REPORT INFORMATION
  Report Type: 
  Country: None (occurrence: None)
  Receive Date: 20080929
  Receipt Date: 20080611
  Transmission Date: 20090109
  Serious: No
  Sender: FDA-Public Use
  Company Number: US-BRISTOL-MYERS SQUIBB COMPANY-14223531

PATIENT
  Age: 43 Year
  Sex: Male
  Weight: 102 kg

DRUGS (6)
  1. ORENCIA [Suspect]
     Indication: RHEUMATOID ARTHRITIS
     Route: 042
     Dates: start: 20070901, end: 20080610
  2. ACTONEL [Concomitant]
  3. METHOTREXATE [Concomitant]
  4. MOBIC [Concomitant]
  5. LISINOPRIL [Concomitant]
  6. PREVACID [Concomitant]

REACTIONS (1)
  - INFUSION SITE REACTION [None]
